FAERS Safety Report 6391528-6 (Version None)
Quarter: 2009Q4

REPORT INFORMATION
  Report Type: 
  Country: None (occurrence: None)
  Receive Date: 20091006
  Receipt Date: 20091006
  Transmission Date: 20100525
  Serious: Yes (Hospitalization, Other)
  Sender: FDA-Public Use
  Company Number: None

PATIENT
  Sex: Female
  Weight: 77.1115 kg

DRUGS (2)
  1. REGLAN [Suspect]
     Indication: NAUSEA
     Dosage: 10 MG
  2. REGLAN [Suspect]
     Indication: VOMITING
     Dosage: 10 MG

REACTIONS (1)
  - TARDIVE DYSKINESIA [None]
